FAERS Safety Report 8454019-4 (Version None)
Quarter: 2012Q2

REPORT INFORMATION
  Report Type: 
  Country: None (occurrence: None)
  Receive Date: 20120620
  Receipt Date: 20120607
  Transmission Date: 20120825
  Serious: Yes (Other)
  Sender: FDA-Public Use
  Company Number: CA-MYLANLABS-2012S1011995

PATIENT
  Age: 32 Year
  Sex: Female

DRUGS (8)
  1. HYDROXYZINE [Suspect]
     Route: 065
  2. PANTOPRAZOLE [Suspect]
     Route: 065
  3. RANITIDINE [Suspect]
     Route: 065
  4. ACETAMINOPHEN [Suspect]
     Route: 065
  5. ONDANSETRON [Suspect]
     Indication: HYPEREMESIS GRAVIDARUM
     Route: 065
  6. OMEPRAZOLE [Suspect]
     Route: 065
  7. METOCLOPRAMIDE [Suspect]
     Indication: HYPEREMESIS GRAVIDARUM
     Dosage: 1.8-3.2 MG/H
     Route: 042
  8. DIPHENHYDRAMINE HCL [Suspect]
     Indication: HYPEREMESIS GRAVIDARUM
     Route: 042

REACTIONS (4)
  - LIVE BIRTH [None]
  - MATERNAL EXPOSURE DURING PREGNANCY [None]
  - FOETAL GROWTH RESTRICTION [None]
  - PREMATURE BABY [None]
